FAERS Safety Report 7654958-8 (Version None)
Quarter: 2011Q3

REPORT INFORMATION
  Report Type: 
  Country: None (occurrence: None)
  Receive Date: 20110804
  Receipt Date: 20110722
  Transmission Date: 20111222
  Serious: No
  Sender: FDA-Public Use
  Company Number: PHHY2011US16894

PATIENT
  Sex: Female

DRUGS (7)
  1. PREMPRO [Concomitant]
     Dosage: 1.5 UNK, UNK
  2. VITAMIN B [Concomitant]
     Dosage: 50000 IU, UNK
  3. LISINOPRIL [Concomitant]
     Dosage: 40 MG, UNK
  4. PREMPRO [Concomitant]
     Dosage: 0.3 UNK, UNK
  5. TASIGNA [Suspect]
     Indication: CHRONIC MYELOID LEUKAEMIA
     Dosage: 200 MG, BID ON EMPTY STOMACH
     Route: 048
     Dates: start: 20101118
  6. LIPITOR [Concomitant]
     Dosage: 10 MG, UNK
  7. METOPROLOL TARTRATE [Concomitant]
     Dosage: 50 MG, UNK

REACTIONS (2)
  - ALOPECIA [None]
  - PRURITUS [None]
